FAERS Safety Report 8413644-7 (Version None)
Quarter: 2012Q2

REPORT INFORMATION
  Report Type: 
  Country: None (occurrence: None)
  Receive Date: 20120605
  Receipt Date: 20120522
  Transmission Date: 20120825
  Serious: Yes (Hospitalization)
  Sender: FDA-Public Use
  Company Number: TW-CELGENEUS-153-50794-11122222

PATIENT
  Sex: Female

DRUGS (6)
  1. NORVASC [Concomitant]
     Indication: HYPERTENSION
     Dosage: 5 MILLIGRAM
     Route: 065
     Dates: start: 20090101
  2. VIDAZA [Suspect]
     Dosage: 150 MILLIGRAM
     Route: 058
     Dates: start: 20111114, end: 20111122
  3. VIDAZA [Suspect]
     Route: 058
     Dates: start: 20110530
  4. ALLOPURINOL [Concomitant]
     Dosage: 100 MILLIGRAM
     Route: 065
     Dates: start: 20110701
  5. IRBESARTAN [Concomitant]
     Indication: HYPERTENSION
     Dosage: 150 MILLIGRAM
     Route: 065
     Dates: start: 20090101
  6. GLUCOPHAGE [Concomitant]
     Indication: DIABETES MELLITUS
     Dosage: 150 MILLIGRAM
     Route: 065
     Dates: start: 20090101

REACTIONS (2)
  - HAEMATOCHEZIA [None]
  - COLON CANCER [None]
